FAERS Safety Report 11837934 (Version 1)
Quarter: 2015Q4

REPORT INFORMATION
  Report Type: Report from Study
  Country: US (occurrence: US)
  Receive Date: 20151215
  Receipt Date: 20151215
  Transmission Date: 20160305
  Serious: Yes (Death)
  Sender: FDA-Public Use
  Company Number: US-EXELIXIS-CABO-15005807

PATIENT
  Age: 55 Year
  Sex: Male

DRUGS (2)
  1. COMETRIQ [Suspect]
     Active Substance: CABOZANTINIB S-MALATE
     Indication: THYROID CANCER
     Dosage: 140 MG, QD
     Route: 048
     Dates: start: 20151021, end: 2015
  2. KEYTRUDA [Concomitant]
     Active Substance: PEMBROLIZUMAB

REACTIONS (7)
  - Candida infection [Unknown]
  - Dysphagia [Unknown]
  - Weight decreased [Unknown]
  - Swollen tongue [Unknown]
  - Sensation of foreign body [Unknown]
  - Stomatitis [Unknown]
  - Death [Fatal]

NARRATIVE: CASE EVENT DATE: 20151117
